FAERS Safety Report 22875918 (Version 3)
Quarter: 2023Q4

REPORT INFORMATION
  Report Type: Report from Study
  Country: US (occurrence: US)
  Receive Date: 20230829
  Receipt Date: 20231228
  Transmission Date: 20240110
  Serious: Yes (Hospitalization, Other)
  Sender: FDA-Public Use
  Company Number: US-ABBVIE-5381867

PATIENT
  Sex: Male
  Weight: 76 kg

DRUGS (1)
  1. SKYRIZI [Suspect]
     Active Substance: RISANKIZUMAB-RZAA
     Indication: Crohn^s disease
     Dosage: FORM STRENGTH: 360 MILLIGRAM
     Route: 058
     Dates: start: 20230307, end: 202309

REACTIONS (7)
  - Red blood cell count decreased [Not Recovered/Not Resolved]
  - Aspiration bone marrow [Unknown]
  - Dysphagia [Unknown]
  - Pneumonia [Unknown]
  - Red blood cell count decreased [Recovered/Resolved]
  - Haemoglobin decreased [Unknown]
  - Hypophagia [Unknown]

NARRATIVE: CASE EVENT DATE: 20230101
